FAERS Safety Report 8530658 (Version 2)
Quarter: 2012Q4

REPORT INFORMATION
  Report Type: Report from Study
  Country: GB (occurrence: GB)
  Receive Date: 20120425
  Receipt Date: 20120919
  Transmission Date: 20130627
  Serious: Yes (Hospitalization)
  Sender: FDA-Public Use
  Company Number: GB-ROCHE-1024055

PATIENT
  Age: 75 Year
  Sex: Male
  Weight: 74.5 kg

DRUGS (2)
  1. ZELBORAF [Suspect]
     Indication: METASTATIC MALIGNANT MELANOMA
     Dosage: dose temporarily interrupted. Last dose prior to AE onset on 25/Oct/2011
     Route: 048
     Dates: start: 20111004, end: 20111026
  2. ZELBORAF [Suspect]
     Route: 065
     Dates: start: 20111031

REACTIONS (1)
  - Oesophagitis [Recovered/Resolved]
